FAERS Safety Report 8916093 (Version 2)
Quarter: 2012Q4

REPORT INFORMATION
  Report Type: 
  Country: US (occurrence: US)
  Receive Date: 20121119
  Receipt Date: 20121214
  Transmission Date: 20130627
  Serious: Yes (Death, Life-Threatening, Disabling)
  Sender: FDA-Public Use
  Company Number: US-GILEAD-2012-0064589

PATIENT
  Sex: Female

DRUGS (7)
  1. LETAIRIS [Suspect]
     Indication: PULMONARY HYPERTENSION
     Dosage: 5 mg, QD
     Route: 048
     Dates: start: 20111013, end: 20121105
  2. LETAIRIS [Suspect]
     Indication: CHEMOTHERAPY
  3. DILAUDID [Concomitant]
     Indication: PAIN
  4. FENTANYL [Concomitant]
  5. SYNTHROID [Concomitant]
  6. ZOFRAN                             /00955301/ [Concomitant]
  7. ALLEGRA D [Concomitant]

REACTIONS (1)
  - Breast cancer metastatic [Fatal]
